FAERS Safety Report 15110381 (Version 1)
Quarter: 2018Q2

REPORT INFORMATION
  Report Type: Spontaneous
  Country: US (occurrence: US)
  Receive Date: 20180612
  Receipt Date: 20180612
  Transmission Date: 20180711
  Serious: No
  Sender: FDA-Public Use
  Company Number: None

PATIENT
  Sex: Female

DRUGS (1)
  1. IBRANCE [Suspect]
     Active Substance: PALBOCICLIB
     Indication: BREAST CANCER FEMALE
     Dosage: 125MG DAILY FOR 21 DAYS EVERY 28 DAY CYCLE ORALLY
     Route: 048
     Dates: start: 20180223

REACTIONS (9)
  - Night sweats [None]
  - Hot flush [None]
  - Lethargy [None]
  - Insomnia [None]
  - Headache [None]
  - Gastrointestinal disorder [None]
  - Fatigue [None]
  - Decreased appetite [None]
  - Neuropathy peripheral [None]
